FAERS Safety Report 8425675-1 (Version None)
Quarter: 2012Q2

REPORT INFORMATION
  Report Type: 
  Country: None (occurrence: None)
  Receive Date: 20120611
  Receipt Date: 20120606
  Transmission Date: 20120825
  Serious: No
  Sender: FDA-Public Use
  Company Number: PHEH2012US011517

PATIENT
  Sex: Female

DRUGS (1)
  1. TASIGNA [Suspect]
     Dosage: 600 MG, DAILY

REACTIONS (4)
  - STRESS [None]
  - PAIN OF SKIN [None]
  - PRURITUS [None]
  - RASH ERYTHEMATOUS [None]
